FAERS Safety Report 7350412-1 (Version None)
Quarter: 2011Q1

REPORT INFORMATION
  Report Type: 
  Country: None (occurrence: None)
  Receive Date: 20110222
  Receipt Date: 20101215
  Transmission Date: 20110831
  Serious: No
  Sender: FDA-Public Use
  Company Number: 023956

PATIENT
  Age: 48 Year
  Sex: Male
  Weight: 86 kg

DRUGS (4)
  1. DECADRON [Concomitant]
  2. KEPPRA [Suspect]
     Dosage: 1500 MG BID
  3. DRUG USED IN DIABETES [Concomitant]
  4. LACOSAMIDE [Suspect]
     Dosage: 200 MG BID, 250 MG BID
     Dates: start: 20101209

REACTIONS (1)
  - RASH [None]
